FAERS Safety Report 10371613 (Version 2)
Quarter: 2014Q3

REPORT INFORMATION
  Report Type: Spontaneous
  Country: FR (occurrence: FR)
  Receive Date: 20140808
  Receipt Date: 20140819
  Transmission Date: 20150326
  Serious: Yes (Other)
  Sender: FDA-Public Use
  Company Number: ALCN2014FR004395

PATIENT
  Sex: Female

DRUGS (4)
  1. TOBRADEX [Suspect]
     Active Substance: DEXAMETHASONE\TOBRAMYCIN
     Indication: POSTOPERATIVE CARE
     Dosage: UNK
     Route: 047
     Dates: start: 20140726
  2. MAXIDEX [Suspect]
     Active Substance: DEXAMETHASONE
     Indication: POSTOPERATIVE CARE
     Dosage: 1 GTT, QH
     Route: 047
     Dates: start: 20140728
  3. MAXIDEX [Suspect]
     Active Substance: DEXAMETHASONE
     Dosage: 1 GTT, Q3H
     Route: 047
     Dates: start: 20140728
  4. VEXOL [Suspect]
     Active Substance: RIMEXOLONE
     Indication: INTRAOCULAR PRESSURE INCREASED
     Dosage: 1 GTT, Q2H
     Route: 047

REACTIONS (7)
  - Corneal opacity [Recovering/Resolving]
  - Headache [Recovered/Resolved]
  - Intraocular pressure increased [Unknown]
  - Eye pain [Unknown]
  - Nasal congestion [Unknown]
  - Pyrexia [Unknown]
  - Diffuse lamellar keratitis [Unknown]

NARRATIVE: CASE EVENT DATE: 20140728
